FAERS Safety Report 4487844-5 (Version None)
Quarter: 2004Q4

REPORT INFORMATION
  Report Type: 
  Country: None (occurrence: None)
  Receive Date: 20041025
  Receipt Date: 20041014
  Transmission Date: 20050328
  Serious: Yes (Other)
  Sender: FDA-Public Use
  Company Number: STA-AE-04-MTX-450

PATIENT
  Age: 69 Year
  Sex: Male

DRUGS (1)
  1. RHEUMATREX [Suspect]
     Indication: RHEUMATOID ARTHRITIS
     Dosage: 6 MG 1X PER 1 WK, ORAL
     Route: 048
     Dates: end: 20020701

REACTIONS (2)
  - DIFFUSE LARGE B-CELL LYMPHOMA STAGE I [None]
  - GASTRIC DISORDER [None]
